FAERS Safety Report 7592455-9 (Version None)
Quarter: 2011Q3

REPORT INFORMATION
  Report Type: 
  Country: None (occurrence: None)
  Receive Date: 20110706
  Receipt Date: 20110624
  Transmission Date: 20111222
  Serious: Yes (Hospitalization, Other)
  Sender: FDA-Public Use
  Company Number: US-BAYER-2011-023904

PATIENT
  Weight: 108 kg

DRUGS (2)
  1. YASMIN [Suspect]
     Dosage: UNK
     Dates: start: 20081001, end: 20081201
  2. YAZ [Suspect]
     Dosage: UNK
     Dates: start: 20081001, end: 20081201

REACTIONS (5)
  - BILIARY COLIC [None]
  - PAIN [None]
  - GALLBLADDER DISORDER [None]
  - INJURY [None]
  - GENERAL PHYSICAL HEALTH DETERIORATION [None]
